FAERS Safety Report 25754870 (Version 1)
Quarter: 2025Q3

REPORT INFORMATION
  Report Type: Report from Study
  Country: US (occurrence: US)
  Receive Date: 20250903
  Receipt Date: 20250903
  Transmission Date: 20251020
  Serious: Yes (Other)
  Sender: RANBAXY
  Company Number: US-SUN PHARMACEUTICAL INDUSTRIES LTD-2025R1-525209

PATIENT
  Age: 56 Year
  Sex: Female

DRUGS (11)
  1. METOPROLOL [Suspect]
     Active Substance: METOPROLOL
     Indication: Product used for unknown indication
     Route: 065
  2. HYDROCHLOROTHIAZIDE [Suspect]
     Active Substance: HYDROCHLOROTHIAZIDE
     Indication: Product used for unknown indication
     Route: 065
  3. LOSARTAN [Suspect]
     Active Substance: LOSARTAN
     Indication: Product used for unknown indication
     Route: 065
  4. LOSARTAN [Suspect]
     Active Substance: LOSARTAN
  5. KORLYM [Suspect]
     Active Substance: MIFEPRISTONE
     Indication: Cushing^s syndrome
     Dosage: 300 MILLIGRAM, QD
     Route: 048
     Dates: start: 20250530, end: 20250626
  6. KORLYM [Suspect]
     Active Substance: MIFEPRISTONE
     Dosage: 600 MILLIGRAM, QD
     Route: 048
     Dates: start: 20250627
  7. LEVOTHYROXINE [Concomitant]
     Active Substance: LEVOTHYROXINE
     Indication: Hypothyroidism
     Route: 065
  8. FLUTICASONE [Concomitant]
     Active Substance: FLUTICASONE
     Indication: Asthma
     Route: 065
  9. FLUOXETINE [Concomitant]
     Active Substance: FLUOXETINE HYDROCHLORIDE
     Indication: Anxiety
     Route: 065
  10. CETIRIZINE [Concomitant]
     Active Substance: CETIRIZINE HYDROCHLORIDE
     Indication: Product used for unknown indication
     Route: 065
  11. ALBUTEROL [Concomitant]
     Active Substance: ALBUTEROL
     Indication: Asthma
     Route: 065

REACTIONS (7)
  - Blood pressure increased [Recovering/Resolving]
  - Blood potassium decreased [Recovered/Resolved]
  - Blood pressure decreased [Not Recovered/Not Resolved]
  - Peripheral swelling [Not Recovered/Not Resolved]
  - Tremor [Not Recovered/Not Resolved]
  - Fatigue [Not Recovered/Not Resolved]
  - Headache [Not Recovered/Not Resolved]

NARRATIVE: CASE EVENT DATE: 20250607
